FAERS Safety Report 4264854-4 (Version None)
Quarter: 2004Q1

REPORT INFORMATION
  Report Type: 
  Country: None (occurrence: None)
  Receive Date: 20040105
  Receipt Date: 20031219
  Transmission Date: 20041129
  Serious: Yes (Death, Hospitalization)
  Sender: FDA-Public Use
  Company Number: STA-AE-03-MTX-210

PATIENT
  Age: 68 Year
  Sex: Female

DRUGS (4)
  1. METHOTREXATE [Suspect]
     Indication: RHEUMATOID ARTHRITIS
     Dosage: 20 MG 1X PER 1 WEEK, ORAL
     Route: 048
     Dates: start: 20000101, end: 20030428
  2. PREDNISONE [Suspect]
     Indication: RHEUMATOID ARTHRITIS
     Dosage: 11 MG 1X PER 1 DAY, ORAL
     Route: 048
  3. FLECAINIDE ACETATE [Suspect]
     Dosage: 0.5 DOSE 2X PER 1 DAY, ORAL
     Route: 048
  4. REMICADE [Suspect]
     Indication: RHEUMATOID ARTHRITIS
     Dosage: 200 MG 1X PER 8 WK, INTRAVENOUS
     Route: 042
     Dates: start: 20020307, end: 20030428

REACTIONS (3)
  - ACUTE MYELOID LEUKAEMIA [None]
  - METASTASES TO LIVER [None]
  - OESOPHAGEAL SQUAMOUS CELL CARCINOMA [None]
